FAERS Safety Report 9779952 (Version 1)
Quarter: 2013Q4

REPORT INFORMATION
  Report Type: Spontaneous
  Country: US (occurrence: US)
  Receive Date: 20131223
  Receipt Date: 20131223
  Transmission Date: 20140711
  Serious: No
  Sender: FDA-Public Use
  Company Number: US-PFIZER INC-2013366460

PATIENT
  Sex: Female

DRUGS (2)
  1. LYRICA [Suspect]
     Indication: THORACIC OUTLET SYNDROME
     Dosage: 100 MG, 2X/DAY
     Dates: start: 2013, end: 2013
  2. LYRICA [Suspect]
     Dosage: 100 MG, 3X/DAY
     Dates: start: 2013

REACTIONS (3)
  - Off label use [Unknown]
  - Local swelling [Unknown]
  - Musculoskeletal stiffness [Unknown]
